FAERS Safety Report 7132013-3 (Version None)
Quarter: 2010Q4

REPORT INFORMATION
  Report Type: 
  Country: None (occurrence: None)
  Receive Date: 20101130
  Receipt Date: 20101130
  Transmission Date: 20110411
  Serious: Yes (Disabling, Other)
  Sender: FDA-Public Use
  Company Number: None

PATIENT
  Age: 54 Year
  Sex: Male
  Weight: 88.6 kg

DRUGS (1)
  1. XIBROM [Suspect]
     Indication: MACULAR OEDEMA
     Dosage: ONE DROP IN RIGHT EYE TWICE A DAY
     Dates: start: 20100806, end: 20101118

REACTIONS (6)
  - CORNEAL DISORDER [None]
  - DRY EYE [None]
  - EYE IRRITATION [None]
  - EYE PAIN [None]
  - OCULAR DISCOMFORT [None]
  - VISUAL ACUITY REDUCED [None]
